FAERS Safety Report 16788345 (Version 2)
Quarter: 2019Q4

REPORT INFORMATION
  Report Type: Spontaneous
  Country: JP (occurrence: JP)
  Receive Date: 20190910
  Receipt Date: 20191015
  Transmission Date: 20200122
  Serious: Yes (Hospitalization, Other)
  Sender: FDA-Public Use
  Company Number: JP-UCBSA-2019038576

PATIENT
  Age: 20 Year
  Sex: Female

DRUGS (3)
  1. SODIUM VALPROATE [Concomitant]
     Active Substance: VALPROATE SODIUM
     Indication: EPILEPSY
     Route: 065
  2. CLOBAZAM. [Concomitant]
     Active Substance: CLOBAZAM
     Indication: EPILEPSY
     Route: 065
  3. VIMPAT [Suspect]
     Active Substance: LACOSAMIDE
     Indication: EPILEPSY
     Dosage: 200 MG DAILY
     Route: 048

REACTIONS (4)
  - Ventricular fibrillation [Recovered/Resolved]
  - Toxicity to various agents [Unknown]
  - Overdose [Unknown]
  - Status epilepticus [Recovered/Resolved]
